FAERS Safety Report 9478221 (Version 1)
Quarter: 2013Q3

REPORT INFORMATION
  Report Type: Spontaneous
  Country: US (occurrence: US)
  Receive Date: 20130827
  Receipt Date: 20130827
  Transmission Date: 20140515
  Serious: Yes (Other)
  Sender: FDA-Public Use
  Company Number: US-PFIZER INC-2013245738

PATIENT
  Age: 66 Year
  Sex: Female
  Weight: 68.48 kg

DRUGS (5)
  1. ATORVASTATIN CALCIUM [Suspect]
     Indication: BLOOD CHOLESTEROL INCREASED
     Dosage: 20 MG, 1X/DAY
     Route: 048
  2. CARVEDILOL [Concomitant]
     Dosage: UNK
  3. WARFARIN [Concomitant]
     Dosage: UNK
  4. LOSARTAN [Concomitant]
     Dosage: UNK
  5. AMLODIPINE [Concomitant]
     Dosage: UNK

REACTIONS (11)
  - Abasia [Unknown]
  - Visual acuity reduced [Unknown]
  - Arthritis [Unknown]
  - Depression [Unknown]
  - Hypertension [Unknown]
  - Gait disturbance [Unknown]
  - Pain [Unknown]
  - Tinnitus [Unknown]
  - Cough [Unknown]
  - Asthenia [Unknown]
  - Malaise [Unknown]
